FAERS Safety Report 6751699-6 (Version None)
Quarter: 2010Q2

REPORT INFORMATION
  Report Type: 
  Country: None (occurrence: None)
  Receive Date: 20100602
  Receipt Date: 20100512
  Transmission Date: 20101027
  Serious: Yes (Hospitalization)
  Sender: FDA-Public Use
  Company Number: B0651494A

PATIENT
  Sex: Male

DRUGS (8)
  1. ARTIST [Suspect]
     Indication: CARDIAC FAILURE CHRONIC
     Dosage: 5MG PER DAY
     Route: 048
     Dates: start: 20080901, end: 20100404
  2. CALBLOCK [Suspect]
     Indication: HYPERTENSION
     Dosage: 16MG PER DAY
     Route: 048
     Dates: start: 20080901, end: 20100404
  3. NORVASC [Concomitant]
  4. NU-LOTAN [Concomitant]
     Dates: start: 20080901
  5. LASIX [Concomitant]
     Dates: start: 20080901
  6. TAKEPRON [Concomitant]
     Dates: start: 20080901
  7. DOXAZOSIN MESYLATE [Concomitant]
     Dates: start: 20080901
  8. PRIMOBOLAN [Concomitant]
     Dates: start: 20090325

REACTIONS (1)
  - SICK SINUS SYNDROME [None]
